FAERS Safety Report 19764067 (Version 2)
Quarter: 2021Q3

REPORT INFORMATION
  Report Type: Report from Study
  Country: US (occurrence: US)
  Receive Date: 20210830
  Receipt Date: 20210918
  Transmission Date: 20211014
  Serious: Yes (Other)
  Sender: FDA-Public Use
  Company Number: US-SUN PHARMACEUTICAL INDUSTRIES LTD-2021R1-308395

PATIENT
  Age: 37 Year
  Sex: Female

DRUGS (3)
  1. ABSORICA [Suspect]
     Active Substance: ISOTRETINOIN
     Dosage: 40 MILLIGRAM, DAILY
     Route: 065
     Dates: start: 20210713
  2. ABSORICA [Suspect]
     Active Substance: ISOTRETINOIN
     Indication: PRODUCT USED FOR UNKNOWN INDICATION
     Dosage: 40 MILLIGRAM, DAILY
     Route: 065
     Dates: start: 20210306
  3. ABSORICA [Suspect]
     Active Substance: ISOTRETINOIN
     Dosage: 20 MILLIGRAM, BID
     Route: 065
     Dates: start: 20210719, end: 20210809

REACTIONS (2)
  - Exposure during pregnancy [Unknown]
  - Abortion spontaneous [Unknown]

NARRATIVE: CASE EVENT DATE: 20210831
